FAERS Safety Report 4856106-6 (Version None)
Quarter: 2005Q4

REPORT INFORMATION
  Report Type: 
  Country: None (occurrence: None)
  Receive Date: 20051216
  Receipt Date: 20050902
  Transmission Date: 20060501
  Serious: Yes (Death)
  Sender: FDA-Public Use
  Company Number: US-MERCK-0509USA00762

PATIENT
  Age: 83 Year
  Sex: Male
  Weight: 108 kg

DRUGS (12)
  1. VIOXX [Suspect]
     Indication: OSTEOARTHRITIS
     Route: 048
     Dates: start: 19991105, end: 20000216
  2. LOPRESSOR [Concomitant]
     Indication: HYPERTENSION
     Route: 065
     Dates: start: 19920101, end: 20000216
  3. TYLENOL [Concomitant]
     Indication: PAIN
     Route: 065
     Dates: start: 19991105
  4. SYNTHROID [Concomitant]
     Route: 065
  5. FUROSEMIDE [Concomitant]
     Route: 065
  6. ZOLADEX [Concomitant]
     Route: 065
  7. ZANTAC [Concomitant]
     Route: 065
  8. ORUVAIL [Concomitant]
     Indication: ARTHRITIS
     Route: 065
  9. MONOPRIL [Concomitant]
     Route: 065
  10. METOPROLOL [Concomitant]
     Route: 065
  11. ACETAMINOPHEN AND CODEINE [Concomitant]
     Route: 065
  12. [THERAPY UNSPECIFIED] [Concomitant]
     Route: 065

REACTIONS (4)
  - ANAEMIA [None]
  - CEREBRAL ARTERY OCCLUSION [None]
  - HYPERTENSION [None]
  - URETHRAL MEATUS STENOSIS [None]
